FAERS Safety Report 6377792-8 (Version None)
Quarter: 2009Q3

REPORT INFORMATION
  Report Type: 
  Country: None (occurrence: None)
  Receive Date: 20090925
  Receipt Date: 20090915
  Transmission Date: 20100115
  Serious: Yes (Other)
  Sender: FDA-Public Use
  Company Number: US-PFIZER INC-2009271177

PATIENT
  Sex: Male
  Weight: 115.65 kg

DRUGS (4)
  1. CHANTIX [Suspect]
     Indication: SMOKING CESSATION THERAPY
     Dates: start: 20090908, end: 20090913
  2. XANAX [Suspect]
     Indication: ANXIETY
     Dosage: 0.5 MG, 3X/DAY
  3. XANAX [Suspect]
     Indication: SUICIDAL IDEATION
  4. ROXICODONE [Concomitant]
     Dosage: 30 MG, 3X/DAY

REACTIONS (3)
  - DEPRESSION [None]
  - FORMICATION [None]
  - SUICIDAL IDEATION [None]
